FAERS Safety Report 17750437 (Version 1)
Quarter: 2020Q2

REPORT INFORMATION
  Report Type: Report from Study
  Country: ES (occurrence: ES)
  Receive Date: 20200506
  Receipt Date: 20200506
  Transmission Date: 20200714
  Serious: Yes (Hospitalization)
  Sender: FDA-Public Use
  Company Number: ES-TEVA-2020-ES-1230313

PATIENT
  Age: 46 Year
  Sex: Female

DRUGS (6)
  1. MICOFENOLATO DE MOFETILO (7330LM) [Suspect]
     Active Substance: MYCOPHENOLATE MOFETIL
     Indication: PROPHYLAXIS AGAINST TRANSPLANT REJECTION
     Dosage: 720 MG
     Route: 048
     Dates: start: 200611
  2. ADVAGRAF 1 MG 30 CAPSULAS DURAS DE LIBERACION PROLONGADA, 30 CAPSULAS [Interacting]
     Active Substance: TACROLIMUS
     Indication: PROPHYLAXIS AGAINST TRANSPLANT REJECTION
     Dosage: 2.5 MG
     Route: 048
     Dates: start: 201511
  3. CARVEDILOL (2431A) [Concomitant]
     Active Substance: CARVEDILOL
     Dosage: 6.25 MG
     Dates: start: 201503, end: 20161215
  4. OMEPRAZOL (2141A) [Concomitant]
     Active Substance: OMEPRAZOLE
     Indication: GASTROOESOPHAGEAL VARICEAL HAEMORRHAGE PROPHYLAXIS
     Dosage: 40 MG
     Route: 048
  5. DOLQUINE 200 MG COMPRIMIDOS RECUBIERTOS, 30 COMPRIMIDOS [Concomitant]
     Active Substance: HYDROXYCHLOROQUINE SULFATE
     Indication: SYSTEMIC LUPUS ERYTHEMATOSUS
     Dosage: 200 MG
     Route: 048
  6. PREDNISONA (886A) [Concomitant]
     Active Substance: PREDNISONE
     Dosage: 5 MG

REACTIONS (2)
  - Cytomegalovirus gastrointestinal infection [Not Recovered/Not Resolved]
  - Drug interaction [Unknown]

NARRATIVE: CASE EVENT DATE: 201612
